FAERS Safety Report 7415383-8 (Version None)
Quarter: 2011Q2

REPORT INFORMATION
  Report Type: 
  Country: None (occurrence: None)
  Receive Date: 20110414
  Receipt Date: 20110405
  Transmission Date: 20111010
  Serious: Yes (Other)
  Sender: FDA-Public Use
  Company Number: B0710921A

PATIENT
  Sex: Female

DRUGS (8)
  1. AERIUS [Suspect]
     Route: 048
  2. ISOMERIDE [Suspect]
     Indication: OVERWEIGHT
     Route: 048
     Dates: start: 19880101, end: 19920101
  3. MEDIATOR [Suspect]
     Dosage: 150MG TWICE PER DAY
     Route: 048
     Dates: start: 20050101, end: 20090101
  4. METFORMINE [Suspect]
     Dosage: 1000MG TWICE PER DAY
     Route: 048
     Dates: start: 20090101
  5. VENTOLIN [Suspect]
     Route: 055
  6. SERETIDE [Suspect]
     Route: 055
  7. STILNOX [Suspect]
     Route: 048
  8. KARDEGIC [Suspect]
     Route: 048

REACTIONS (3)
  - AORTIC VALVE DISEASE [None]
  - DYSPNOEA EXERTIONAL [None]
  - CHRONIC OBSTRUCTIVE PULMONARY DISEASE [None]
